FAERS Safety Report 4451658-2 (Version None)
Quarter: 2004Q3

REPORT INFORMATION
  Report Type: 
  Country: None (occurrence: None)
  Receive Date: 20040915
  Receipt Date: 20040903
  Transmission Date: 20050211
  Serious: Yes (Congenital Anomaly)
  Sender: FDA-Public Use
  Company Number: 2004063440

PATIENT
  Age: 6 Month
  Sex: Male

DRUGS (2)
  1. VIRACEPT [Suspect]
     Indication: HIV INFECTION
     Dosage: 2500 MG (1250 MG, 2 IN 1 D), ORAL
     Route: 048
     Dates: start: 20030311, end: 20031219
  2. ZIDOVUDINE W/LAMIVUDINE (LAMIVUDINE, ZIDOVUDINE) [Suspect]
     Indication: HIV INFECTION
     Dosage: 900 MG (450 MG, 2 IN 1 D), ORAL
     Route: 048
     Dates: start: 20030311, end: 20031219

REACTIONS (3)
  - CONGENITAL ANOMALY [None]
  - DRUG EXPOSURE DURING PREGNANCY [None]
  - TESTICULAR ATROPHY [None]
